FAERS Safety Report 7551822-X (Version None)
Quarter: 2011Q2

REPORT INFORMATION
  Report Type: 
  Country: None (occurrence: None)
  Receive Date: 20110609
  Receipt Date: 20110524
  Transmission Date: 20111010
  Serious: Yes (Death, Hospitalization, Other)
  Sender: FDA-Public Use
  Company Number: 2011MA006481

PATIENT
  Age: 38 Year
  Sex: Male

DRUGS (1)
  1. PHENOBARBITAL TAB [Suspect]
     Indication: SUICIDE ATTEMPT
     Dosage: 1200 MG; 1X;
     Dates: start: 20080911

REACTIONS (15)
  - INTENTIONAL OVERDOSE [None]
  - BLOODY DISCHARGE [None]
  - RALES [None]
  - FOAMING AT MOUTH [None]
  - NAIL DISCOLOURATION [None]
  - CONJUNCTIVAL HYPERAEMIA [None]
  - VISCERAL CONGESTION [None]
  - HYPOTONIA [None]
  - COMPLETED SUICIDE [None]
  - AREFLEXIA [None]
  - RHONCHI [None]
  - MYDRIASIS [None]
  - LOSS OF CONSCIOUSNESS [None]
  - ELECTROCARDIOGRAM T WAVE AMPLITUDE INCREASED [None]
  - GASTRIC HAEMORRHAGE [None]
